FAERS Safety Report 6289344-9 (Version None)
Quarter: 2009Q3

REPORT INFORMATION
  Report Type: 
  Country: None (occurrence: None)
  Receive Date: 20090728
  Receipt Date: 20090728
  Transmission Date: 20100115
  Serious: Yes (Hospitalization)
  Sender: FDA-Public Use
  Company Number: None

PATIENT
  Age: 36 Year
  Sex: Female

DRUGS (1)
  1. LAMOTRIGINE [Suspect]
     Dosage: 25 MG ONCE DAILY PO
     Route: 048

REACTIONS (3)
  - BONE MARROW FAILURE [None]
  - PYREXIA [None]
  - RASH GENERALISED [None]
